FAERS Safety Report 4729579-7 (Version None)
Quarter: 2005Q3

REPORT INFORMATION
  Report Type: 
  Country: None (occurrence: None)
  Receive Date: 20050801
  Receipt Date: 20050328
  Transmission Date: 20060218
  Serious: Yes (Hospitalization)
  Sender: FDA-Public Use
  Company Number: US-MERCK-0503USA05011

PATIENT
  Age: 77 Year
  Sex: Female
  Weight: 105 kg

DRUGS (13)
  1. VIOXX [Suspect]
     Indication: ARTHRITIS
     Route: 048
     Dates: start: 20000922, end: 20020305
  2. ZITHROMAX [Concomitant]
     Route: 065
  3. GANI-TUSS DM NR [Concomitant]
     Route: 065
  4. TUSSAFED [Concomitant]
     Route: 065
  5. ZOCOR [Concomitant]
     Route: 065
  6. WARFARIN [Concomitant]
     Route: 065
  7. DIGITEK [Concomitant]
     Route: 065
  8. AMIODARONE MSD [Concomitant]
     Route: 065
  9. ALTACE [Concomitant]
     Route: 065
  10. DEMADEX [Concomitant]
     Route: 065
  11. SSD AND SSD AF CREAM [Concomitant]
     Route: 065
  12. FE-TINIC [Concomitant]
     Route: 065
  13. METOPROLOL-BC [Concomitant]
     Route: 065

REACTIONS (15)
  - ANAEMIA [None]
  - ATRIAL FIBRILLATION [None]
  - BLOOD SODIUM DECREASED [None]
  - CARDIAC FAILURE CONGESTIVE [None]
  - CARDIOMEGALY [None]
  - CORONARY ARTERY DISEASE [None]
  - CORONARY ARTERY OCCLUSION [None]
  - FACIAL SPASM [None]
  - HYPERLIPIDAEMIA [None]
  - MITRAL VALVE INCOMPETENCE [None]
  - MYOCARDIAL INFARCTION [None]
  - PLEURAL EFFUSION [None]
  - PULMONARY EMBOLISM [None]
  - RESPIRATORY FAILURE [None]
  - RESPIRATORY TRACT IRRITATION [None]
